FAERS Safety Report 4767189-6 (Version None)
Quarter: 2005Q3

REPORT INFORMATION
  Report Type: 
  Country: None (occurrence: None)
  Receive Date: 20050913
  Receipt Date: 20050823
  Transmission Date: 20060218
  Serious: Yes (Death)
  Sender: FDA-Public Use
  Company Number: 200512482JP

PATIENT
  Sex: 0

DRUGS (2)
  1. LASIX [Suspect]
  2. UNKNOWN DRUG [Concomitant]

REACTIONS (2)
  - DEATH [None]
  - LIVER DISORDER [None]
